FAERS Safety Report 7827232-4 (Version None)
Quarter: 2011Q4

REPORT INFORMATION
  Report Type: 
  Country: None (occurrence: None)
  Receive Date: 20111020
  Receipt Date: 20111014
  Transmission Date: 20120403
  Serious: Yes (Death)
  Sender: FDA-Public Use
  Company Number: IN-PFIZER INC-2011245810

PATIENT
  Age: 45 Year
  Sex: Male

DRUGS (2)
  1. INF-ALPHA [Concomitant]
     Indication: METASTATIC RENAL CELL CARCINOMA
     Route: 042
  2. TORISEL [Suspect]
     Indication: METASTATIC RENAL CELL CARCINOMA
     Dosage: 25 MG, WEEKLY
     Route: 042
     Dates: start: 20111008, end: 20111008

REACTIONS (1)
  - MYOCARDIAL INFARCTION [None]
